FAERS Safety Report 24578139 (Version 1)
Quarter: 2024Q4

REPORT INFORMATION
  Report Type: Report from Study
  Country: CA (occurrence: CA)
  Receive Date: 20241104
  Receipt Date: 20241104
  Transmission Date: 20250115
  Serious: Yes (Other)
  Sender: ABBVIE
  Company Number: CA-ABBVIE-5983875

PATIENT
  Sex: Female

DRUGS (1)
  1. SKYRIZI [Suspect]
     Active Substance: RISANKIZUMAB-RZAA
     Indication: Crohn^s disease
     Route: 058
     Dates: start: 20230119

REACTIONS (9)
  - Surgery [Unknown]
  - Sinusitis [Unknown]
  - Frequent bowel movements [Unknown]
  - Inflammation [Unknown]
  - Anal erythema [Unknown]
  - Anal pruritus [Unknown]
  - Bowel movement irregularity [Unknown]
  - Sinus disorder [Unknown]
  - Dyspnoea [Unknown]

NARRATIVE: CASE EVENT DATE: 20230101
